FAERS Safety Report 9270134 (Version 1)
Quarter: 2013Q2

REPORT INFORMATION
  Report Type: Spontaneous
  Country: US (occurrence: US)
  Receive Date: 20130503
  Receipt Date: 20130503
  Transmission Date: 20140414
  Serious: No
  Sender: FDA-Public Use
  Company Number: US-009507513-1305USA000630

PATIENT
  Sex: Female

DRUGS (8)
  1. DULERA [Suspect]
     Indication: EMPHYSEMA
     Dosage: 2 INHALATIONS IN AM/ 2 INHALATIONS IN PM
     Route: 055
     Dates: start: 2012
  2. OXYGEN [Concomitant]
  3. VENTOLIN (ALBUTEROL SULFATE) [Concomitant]
  4. ISOSORBIDE [Concomitant]
  5. LISINOPRIL [Concomitant]
  6. NORVASC [Concomitant]
  7. METOPROLOL [Concomitant]
  8. NITROGLYCERIN [Concomitant]

REACTIONS (2)
  - Dyspnoea [Unknown]
  - Product quality issue [Unknown]
